FAERS Safety Report 6080572-4 (Version None)
Quarter: 2009Q1

REPORT INFORMATION
  Report Type: 
  Country: None (occurrence: None)
  Receive Date: 20090217
  Receipt Date: 20090216
  Transmission Date: 20090719
  Serious: Yes (Hospitalization)
  Sender: FDA-Public Use
  Company Number: B0558718A

PATIENT
  Age: 58 Year
  Sex: Male

DRUGS (3)
  1. CLAMOXYL [Suspect]
     Route: 048
     Dates: start: 20081223, end: 20090101
  2. IBUPROFEN TABLETS [Suspect]
     Route: 048
     Dates: start: 20081201, end: 20090101
  3. DOLIPRANE [Suspect]
     Route: 048
     Dates: start: 20081201, end: 20090101

REACTIONS (2)
  - AGRANULOCYTOSIS [None]
  - FEBRILE NEUTROPENIA [None]
